FAERS Safety Report 4648343-0 (Version None)
Quarter: 2005Q2

REPORT INFORMATION
  Report Type: 
  Country: None (occurrence: None)
  Receive Date: 20050426
  Receipt Date: 20050421
  Transmission Date: 20051028
  Serious: Yes (Hospitalization)
  Sender: FDA-Public Use
  Company Number: HQWYE188522APR05

PATIENT
  Age: 70 Year
  Sex: Male

DRUGS (2)
  1. AMIODARONE HCL [Suspect]
     Indication: ATRIAL FIBRILLATION
     Dosage: 100 MG 1X PER 1 DAY, INTRAVENOUS
     Route: 042
     Dates: start: 20000730, end: 20000730
  2. AMIODARONE HCL [Suspect]
     Indication: ATRIAL FLUTTER
     Dosage: 100 MG 1X PER 1 DAY, INTRAVENOUS
     Route: 042
     Dates: start: 20000730, end: 20000730

REACTIONS (3)
  - CHILLS [None]
  - HYPOTENSION [None]
  - NAUSEA [None]
